FAERS Safety Report 13937792 (Version 6)
Quarter: 2019Q1

REPORT INFORMATION
  Report Type: Spontaneous
  Country: US (occurrence: US)
  Receive Date: 20170905
  Receipt Date: 20190130
  Transmission Date: 20190417
  Serious: No
  Sender: FDA-Public Use
  Company Number: US-PFIZER INC-2017376337

PATIENT
  Age: 76 Year
  Sex: Male

DRUGS (3)
  1. LYRICA [Suspect]
     Active Substance: PREGABALIN
     Indication: RADICULOPATHY
     Dosage: 250 MG, UNK (ONE 225MG CAPSULE AND ONE 25MG CAPSULE)
  2. LYRICA [Suspect]
     Active Substance: PREGABALIN
     Indication: MUSCULOSKELETAL PAIN
     Dosage: 250 MG, UNK (ONE 225MG CAPSULE AND ONE 25MG CAPSULE)
  3. LYRICA [Suspect]
     Active Substance: PREGABALIN
     Dosage: 300 MG, 2X/DAY (DISP: 60 CAPSULE (SIXTY))
     Route: 048

REACTIONS (3)
  - Product prescribing error [Unknown]
  - Withdrawal syndrome [Unknown]
  - Influenza [Unknown]
